FAERS Safety Report 12621956 (Version 5)
Quarter: 2017Q3

REPORT INFORMATION
  Report Type: Report from Study
  Country: ES (occurrence: ES)
  Receive Date: 20160804
  Receipt Date: 20170907
  Transmission Date: 20171127
  Serious: Yes (Hospitalization, Other)
  Sender: FDA-Public Use
  Company Number: ES-EISAI MEDICAL RESEARCH-EC-2016-019042

PATIENT
  Age: 54 Year
  Sex: Female

DRUGS (20)
  1. ATENOLOL. [Concomitant]
     Active Substance: ATENOLOL
  2. MYCOSTATIN [Concomitant]
     Active Substance: NYSTATIN
  3. ERIBULIN [Suspect]
     Active Substance: ERIBULIN
     Indication: TRIPLE NEGATIVE BREAST CANCER
     Dosage: FLUCTUATING DOSES: 2.46-2.51 MG
     Route: 041
     Dates: start: 20160503, end: 20160712
  4. LEVOCETIRIZINE [Concomitant]
     Active Substance: LEVOCETIRIZINE
  5. MOMETASONE [Concomitant]
     Active Substance: MOMETASONE
  6. PQR309 [Suspect]
     Active Substance: INVESTIGATIONAL PRODUCT
     Indication: TRIPLE NEGATIVE BREAST CANCER
     Route: 048
     Dates: start: 20160510, end: 20160514
  7. PQR309 [Suspect]
     Active Substance: INVESTIGATIONAL PRODUCT
     Route: 048
     Dates: start: 20160525, end: 20160605
  8. PQR309 [Suspect]
     Active Substance: INVESTIGATIONAL PRODUCT
     Route: 048
     Dates: start: 20160614, end: 20160627
  9. BUSCAPINA [Concomitant]
     Active Substance: BUTYLSCOPOLAMINE BROMIDE
  10. VARIDASA [Concomitant]
  11. LIDOCAINE. [Concomitant]
     Active Substance: LIDOCAINE
  12. DEXAMETHASONE. [Concomitant]
     Active Substance: DEXAMETHASONE
  13. METOCLOPRAMIDE. [Concomitant]
     Active Substance: METOCLOPRAMIDE
  14. MICRALAX [Concomitant]
  15. ESCITALOPRAM [Concomitant]
     Active Substance: ESCITALOPRAM OXALATE
  16. PRIMPERAN [Concomitant]
     Active Substance: METOCLOPRAMIDE HYDROCHLORIDE
  17. MAGNESIA [Concomitant]
     Active Substance: MAGNESIUM HYDROXIDE
  18. APIRETAL [Concomitant]
  19. ERIBULIN [Suspect]
     Active Substance: ERIBULIN
     Dosage: RESUMED AT UNKNOWN DOSE, OFF STUDY.
     Route: 041
     Dates: start: 20160816
  20. PQR309 [Suspect]
     Active Substance: INVESTIGATIONAL PRODUCT
     Route: 048
     Dates: start: 20160704, end: 20160717

REACTIONS (3)
  - Mucosal inflammation [Recovered/Resolved]
  - Febrile neutropenia [Recovered/Resolved]
  - Neutrophil count decreased [Recovered/Resolved]

NARRATIVE: CASE EVENT DATE: 20160517
